FAERS Safety Report 17089096 (Version 2)
Quarter: 2020Q1

REPORT INFORMATION
  Report Type: Report from Study
  Country: BR (occurrence: BR)
  Receive Date: 20191128
  Receipt Date: 20200309
  Transmission Date: 20200409
  Serious: Yes (Hospitalization, Other)
  Sender: FDA-Public Use
  Company Number: NVSC2019BR040484

PATIENT
  Age: 43 Year
  Sex: Female
  Weight: 109 kg

DRUGS (4)
  1. MAREVAN [Concomitant]
     Active Substance: WARFARIN SODIUM
     Indication: PRODUCT USED FOR UNKNOWN INDICATION
     Route: 065
  2. FASLODEX [Concomitant]
     Active Substance: FULVESTRANT
     Indication: PRODUCT USED FOR UNKNOWN INDICATION
     Dosage: STARTED 30 OCT (YEAR UNSPECIFIED)
     Route: 065
     Dates: start: 201910
  3. ANASTROZOLE. [Suspect]
     Active Substance: ANASTROZOLE
     Indication: ADJUVANT THERAPY
     Dosage: UNK MG
     Route: 048
     Dates: start: 201902, end: 201912
  4. ZOLADEX [Concomitant]
     Active Substance: GOSERELIN ACETATE
     Indication: PRODUCT USED FOR UNKNOWN INDICATION
     Dosage: STARTED 30 OCT (YEAR UNSPECIFIED)
     Route: 065
     Dates: start: 201910

REACTIONS (30)
  - Metastases to central nervous system [Recovering/Resolving]
  - Vision blurred [Recovered/Resolved]
  - Arthralgia [Recovering/Resolving]
  - Drug ineffective [Not Recovered/Not Resolved]
  - Intracardiac thrombus [Unknown]
  - Peripheral swelling [Recovering/Resolving]
  - Hypokinesia [Unknown]
  - Breast cancer stage IV [Unknown]
  - Coagulopathy [Unknown]
  - Feeling hot [Recovering/Resolving]
  - Dizziness [Not Recovered/Not Resolved]
  - Thrombosis [Unknown]
  - Migraine [Recovering/Resolving]
  - Peripheral venous disease [Recovering/Resolving]
  - Nodule [Unknown]
  - Tinnitus [Unknown]
  - Fatigue [Recovering/Resolving]
  - Feeling abnormal [Unknown]
  - Visual impairment [Unknown]
  - Pulmonary embolism [Unknown]
  - Musculoskeletal stiffness [Recovering/Resolving]
  - Eye pain [Recovering/Resolving]
  - Menopausal symptoms [Recovering/Resolving]
  - Head injury [Not Recovered/Not Resolved]
  - Metastases to bone [Unknown]
  - Headache [Recovering/Resolving]
  - Malaise [Recovering/Resolving]
  - Head discomfort [Recovering/Resolving]
  - Dyspnoea [Unknown]
  - Crying [Unknown]

NARRATIVE: CASE EVENT DATE: 201902
